FAERS Safety Report 13690945 (Version 1)
Quarter: 2017Q2

REPORT INFORMATION
  Report Type: Spontaneous
  Country: FR (occurrence: FR)
  Receive Date: 20170626
  Receipt Date: 20170626
  Transmission Date: 20170830
  Serious: Yes (Life-Threatening, Other)
  Sender: FDA-Public Use
  Company Number: FR-MYLANLABS-2017M1038048

PATIENT

DRUGS (6)
  1. ULTIVA [Suspect]
     Active Substance: REMIFENTANIL HYDROCHLORIDE
     Indication: ANAESTHESIA
     Dosage: 50 ?G AT 08:43 AM AND 50 ?G AT 08:44 AM
     Route: 042
     Dates: start: 20170609, end: 20170609
  2. DEXAMETHASONE MYLAN 4 MG/1 ML, SOLUTION INJECTABLE EN AMPOULE [Suspect]
     Active Substance: DEXAMETHASONE
     Indication: PROPHYLAXIS
     Dosage: 8 MG, ONCE
     Route: 042
     Dates: start: 20170609, end: 20170609
  3. C?FAZOLINE MYLAN 2 G, POUDRE POUR SOLUTION INJECTABLE (IM-IV) [Suspect]
     Active Substance: CEFAZOLIN SODIUM
     Indication: INFECTION PROPHYLAXIS
     Dosage: 2 G, ONCE
     Route: 042
     Dates: start: 20170609, end: 20170609
  4. CISATRACURIUM MYLAN [Suspect]
     Active Substance: CISATRACURIUM
     Indication: ANAESTHESIA
     Dosage: 10 MG, ONCE
     Route: 042
     Dates: start: 20170609, end: 20170609
  5. PROPOFOL PANPHARMA [Suspect]
     Active Substance: PROPOFOL
     Indication: ANAESTHESIA
     Dosage: 3 ?G, ONCE
     Route: 042
     Dates: start: 20170609, end: 20170609
  6. KETAMINE RENAUDIN [Suspect]
     Active Substance: KETAMINE
     Indication: ANAESTHESIA
     Dosage: 1 DF, ONCE
     Route: 042
     Dates: start: 20170609, end: 20170609

REACTIONS (5)
  - Anaphylactic shock [Recovered/Resolved]
  - Rash [None]
  - Pulmonary hypertension [None]
  - Hypocapnia [None]
  - Tachycardia [None]

NARRATIVE: CASE EVENT DATE: 20170609
